FAERS Safety Report 12643929 (Version 1)
Quarter: 2016Q3

REPORT INFORMATION
  Report Type: Spontaneous
  Country: US (occurrence: US)
  Receive Date: 20160811
  Receipt Date: 20160811
  Transmission Date: 20161109
  Serious: No
  Sender: FDA-Public Use
  Company Number: US-BAYER-2016-151650

PATIENT
  Age: 84 Year
  Sex: Male
  Weight: 63.49 kg

DRUGS (8)
  1. FORTEO [Concomitant]
     Active Substance: TERIPARATIDE
  2. ATENOLOL. [Concomitant]
     Active Substance: ATENOLOL
  3. FINASTERIDE. [Concomitant]
     Active Substance: FINASTERIDE
  4. MIRALAX [Suspect]
     Active Substance: POLYETHYLENE GLYCOL 3350
     Indication: CONSTIPATION
  5. MIRALAX [Suspect]
     Active Substance: POLYETHYLENE GLYCOL 3350
     Indication: CONSTIPATION
     Route: 048
  6. VITAMIN D3 [Concomitant]
     Active Substance: CHOLECALCIFEROL
  7. TAMSULOSIN [Concomitant]
     Active Substance: TAMSULOSIN
  8. CALCIUM [Concomitant]
     Active Substance: CALCIUM

REACTIONS (1)
  - Product use issue [None]
